FAERS Safety Report 17858606 (Version 2)
Quarter: 2020Q2

REPORT INFORMATION
  Report Type: Report from Study
  Country: None (occurrence: US)
  Receive Date: 20200604
  Receipt Date: 20200605
  Transmission Date: 20200714
  Serious: No
  Sender: FDA-Public Use
  Company Number: US-US WORLDMEDS, LLC-USW202001-000077

PATIENT
  Age: 63 Year
  Sex: Male
  Weight: 96.61 kg

DRUGS (13)
  1. POT CL [Concomitant]
  2. VERAPAMIL [Concomitant]
     Active Substance: VERAPAMIL HYDROCHLORIDE
  3. APOKYN [Suspect]
     Active Substance: APOMORPHINE HYDROCHLORIDE
     Route: 058
  4. SIMVASTATIN. [Concomitant]
     Active Substance: SIMVASTATIN
  5. ZALEPLON. [Concomitant]
     Active Substance: ZALEPLON
  6. CARB/LEVO [Concomitant]
     Active Substance: CARBIDOPA\LEVODOPA
     Dosage: 25/100 MG
  7. APOKYN [Suspect]
     Active Substance: APOMORPHINE HYDROCHLORIDE
     Indication: PARKINSON^S DISEASE
     Route: 058
     Dates: start: 20200115
  8. TAMSULOSIN [Concomitant]
     Active Substance: TAMSULOSIN
  9. CHLORTHALIDONE. [Concomitant]
     Active Substance: CHLORTHALIDONE
  10. CARB/LEVO [Concomitant]
     Active Substance: CARBIDOPA\LEVODOPA
     Dosage: 10-100 MG
  11. OMEPRAZOLE. [Concomitant]
     Active Substance: OMEPRAZOLE
  12. TRIMETHOBENZAMIDE [Concomitant]
     Active Substance: TRIMETHOBENZAMIDE
  13. ACEBUTOLOL [Concomitant]
     Active Substance: ACEBUTOLOL

REACTIONS (6)
  - Hyperhidrosis [Recovered/Resolved]
  - Nasal congestion [Recovered/Resolved]
  - Somnolence [Recovered/Resolved]
  - Hot flush [Recovered/Resolved]
  - Yawning [Recovered/Resolved]
  - Blood pressure decreased [Recovered/Resolved]

NARRATIVE: CASE EVENT DATE: 20200115
